FAERS Safety Report 4956707-0 (Version None)
Quarter: 2006Q1

REPORT INFORMATION
  Report Type: 
  Country: None (occurrence: None)
  Receive Date: 20060329
  Receipt Date: 20060324
  Transmission Date: 20060701
  Serious: Yes (Other)
  Sender: FDA-Public Use
  Company Number: US-GLAXOSMITHKLINE-A0598987A

PATIENT
  Age: 17 Year
  Sex: Female

DRUGS (4)
  1. LAMICTAL [Suspect]
     Route: 048
     Dates: start: 20060310
  2. ADDERALL XR 10 [Concomitant]
  3. NASONEX [Concomitant]
  4. TRAZODONE HCL [Concomitant]

REACTIONS (6)
  - ERYTHEMA [None]
  - HEADACHE [None]
  - LYMPHADENOPATHY [None]
  - PRURITUS [None]
  - PYREXIA [None]
  - VISUAL ACUITY REDUCED [None]
